FAERS Safety Report 10786725 (Version 2)
Quarter: 2015Q2

REPORT INFORMATION
  Report Type: Spontaneous
  Country: US (occurrence: US)
  Receive Date: 20150211
  Receipt Date: 20150407
  Transmission Date: 20150821
  Serious: Yes (Hospitalization, Other)
  Sender: FDA-Public Use
  Company Number: US-SA-2015SA003703

PATIENT
  Age: 64 Year
  Sex: Female

DRUGS (8)
  1. ZETIA [Concomitant]
     Active Substance: EZETIMIBE
     Route: 048
  2. ASPIRIN. [Concomitant]
     Active Substance: ASPIRIN
  3. ATENOLOL. [Concomitant]
     Active Substance: ATENOLOL
     Route: 048
  4. FELODIPINE. [Concomitant]
     Active Substance: FELODIPINE
     Dosage: EXTENDED RELEASE 24 HOUR
     Route: 048
  5. KYNAMRO [Suspect]
     Active Substance: MIPOMERSEN SODIUM
     Route: 065
  6. CRESTOR [Concomitant]
     Active Substance: ROSUVASTATIN CALCIUM
     Route: 048
  7. ISOSORBIDE MONONITRATE. [Concomitant]
     Active Substance: ISOSORBIDE MONONITRATE
     Dosage: EXTENDED RELEASE 24 HOUR
     Route: 048
  8. PROTONIX [Concomitant]
     Active Substance: PANTOPRAZOLE SODIUM
     Dosage: 40 MG GRANULES DELAYED RELEASE FOR SUSPENSION IN PACKET
     Route: 048

REACTIONS (6)
  - Chest discomfort [Unknown]
  - Influenza like illness [Unknown]
  - Fatigue [Unknown]
  - Musculoskeletal stiffness [Unknown]
  - Dizziness [Recovered/Resolved]
  - Bradycardia [Unknown]
